FAERS Safety Report 24116338 (Version 1)
Quarter: 2024Q3

REPORT INFORMATION
  Report Type: Spontaneous
  Country: NL (occurrence: NL)
  Receive Date: 20240722
  Receipt Date: 20240722
  Transmission Date: 20241017
  Serious: Yes (Hospitalization)
  Sender: CELLTRION
  Company Number: NL-CELLTRION INC.-2024NL017310

PATIENT

DRUGS (9)
  1. RITUXIMAB [Suspect]
     Active Substance: RITUXIMAB
     Indication: Non-Hodgkin^s lymphoma
     Dosage: 1 DF, 1 EVERY WEEK
     Dates: start: 20230214
  2. LEVOTHYROXINE [Concomitant]
     Active Substance: LEVOTHYROXINE\LEVOTHYROXINE SODIUM
     Dosage: CAPSULE, 100 UG (MICROGRAM)
  3. ESTRADIOL [Concomitant]
     Active Substance: ESTRADIOL
     Dosage: TABLET, 1 MG (MILLIGRAM)
  4. DULOXETINE [Concomitant]
     Active Substance: DULOXETINE
     Dosage: CAPSULE, 30 MG (MILLIGRAM)
  5. MELOXICAM [Concomitant]
     Active Substance: MELOXICAM
     Dosage: TABLET, 7,5 MG (MILLIGRAM)
  6. CYTOMEL [Concomitant]
     Active Substance: LIOTHYRONINE SODIUM
     Dosage: TABLET, 5 UG (MICROGRAM)
  7. AMILORIDE HYDROCHLORIDE\HYDROCHLOROTHIAZIDE [Concomitant]
     Active Substance: AMILORIDE HYDROCHLORIDE\HYDROCHLOROTHIAZIDE
     Dosage: TABLET, 5/50 MG (MILLIGRAM)
  8. ESOMEPRAZOLE [Concomitant]
     Active Substance: ESOMEPRAZOLE
     Dosage: CAPSULE, 40 MG (MILLIGRAM)
  9. METFORMIN HYDROCHLORIDE [Concomitant]
     Active Substance: METFORMIN HYDROCHLORIDE
     Dosage: TABLET, 500 MG (MILLIGRAM)

REACTIONS (3)
  - Nausea [Recovering/Resolving]
  - Abdominal pain [Recovering/Resolving]
  - Influenza like illness [Recovering/Resolving]
